FAERS Safety Report 20731826 (Version 2)
Quarter: 2022Q3

REPORT INFORMATION
  Report Type: Report from Study
  Country: US (occurrence: US)
  Receive Date: 20220420
  Receipt Date: 20220705
  Transmission Date: 20221027
  Serious: Yes (Life-Threatening, Other)
  Sender: FDA-Public Use
  Company Number: US-BRISTOL-MYERS SQUIBB COMPANY-2022-012761

PATIENT
  Age: 73 Year
  Sex: Male
  Weight: 70.31 kg

DRUGS (2)
  1. POMALYST [Suspect]
     Active Substance: POMALIDOMIDE
     Indication: Plasma cell myeloma
     Dosage: FREQUENCY: DAILY 21 OF 28 DAYS
     Route: 048
     Dates: start: 20220211
  2. POMALYST [Suspect]
     Active Substance: POMALIDOMIDE
     Route: 048
     Dates: start: 20220211

REACTIONS (4)
  - Dyspnoea [Unknown]
  - Atrial fibrillation [Unknown]
  - Wheezing [Unknown]
  - Cough [Unknown]
